FAERS Safety Report 5341507-2 (Version None)
Quarter: 2007Q2

REPORT INFORMATION
  Report Type: 
  Country: None (occurrence: None)
  Receive Date: 20070601
  Receipt Date: 20070525
  Transmission Date: 20071010
  Serious: Yes (Other)
  Sender: FDA-Public Use
  Company Number: PHEH2007US08015

PATIENT
  Sex: Female

DRUGS (2)
  1. AREDIA [Suspect]
     Indication: BREAST CANCER
  2. ZOMETA [Suspect]
     Indication: BREAST CANCER

REACTIONS (8)
  - ANXIETY [None]
  - DEFORMITY [None]
  - EMOTIONAL DISTRESS [None]
  - JAW OPERATION [None]
  - ORAL INTAKE REDUCED [None]
  - OSTEONECROSIS [None]
  - PAIN [None]
  - TOOTH LOSS [None]
